FAERS Safety Report 7539451-5 (Version None)
Quarter: 2011Q2

REPORT INFORMATION
  Report Type: 
  Country: None (occurrence: None)
  Receive Date: 20110610
  Receipt Date: 20110607
  Transmission Date: 20111010
  Serious: Yes (Other)
  Sender: FDA-Public Use
  Company Number: HU-PFIZER INC-2011124577

PATIENT
  Age: 71 Year
  Sex: Male

DRUGS (2)
  1. BISOPROLOL [Concomitant]
     Dosage: UNK
     Dates: start: 20080101
  2. ATORVASTATIN CALCIUM [Suspect]
     Dosage: 20 MG, 1X/DAY
     Dates: start: 20110330, end: 20110407

REACTIONS (1)
  - GOITRE [None]
